FAERS Safety Report 5447797-X (Version None)
Quarter: 2007Q3

REPORT INFORMATION
  Report Type: 
  Country: None (occurrence: None)
  Receive Date: 20070910
  Receipt Date: 20070904
  Transmission Date: 20080115
  Serious: Yes (Hospitalization, Disabling, Other)
  Sender: FDA-Public Use
  Company Number: GR-ASTRAZENECA-2007SE04725

PATIENT
  Age: 54 Year
  Sex: Female
  Weight: 71 kg

DRUGS (1)
  1. NOLVADEX [Suspect]
     Indication: BREAST CANCER
     Route: 048
     Dates: start: 20051201

REACTIONS (4)
  - ENDOMETRIAL HYPERPLASIA [None]
  - ENDOMETRIOSIS [None]
  - INTESTINAL POLYP [None]
  - OVARIAN ENLARGEMENT [None]
